FAERS Safety Report 4420617-8 (Version None)
Quarter: 2004Q2

REPORT INFORMATION
  Report Type: 
  Country: None (occurrence: None)
  Receive Date: 20040618
  Receipt Date: 20040330
  Transmission Date: 20050107
  Serious: Yes (Hospitalization)
  Sender: FDA-Public Use
  Company Number: US-SHR-03-008596

PATIENT
  Age: 71 Year
  Sex: Male

DRUGS (2)
  1. FLUDARA [Suspect]
     Indication: CHRONIC LYMPHOCYTIC LEUKAEMIA
     Dosage: 25 MG/M2/DAILY/DAYS 3-5 OF CYCLE
     Dates: start: 20030313, end: 20030513
  2. RITUXIMAB (RITUXIMAB) [Concomitant]

REACTIONS (2)
  - FIBROSIS [None]
  - LUNG INFILTRATION [None]
